FAERS Safety Report 25637833 (Version 2)
Quarter: 2025Q3

REPORT INFORMATION
  Report Type: Spontaneous
  Country: US (occurrence: US)
  Receive Date: 20250804
  Receipt Date: 20250822
  Transmission Date: 20251021
  Serious: No
  Sender: DR REDDYS
  Company Number: None

PATIENT
  Age: 23 Year
  Sex: Female
  Weight: 67.1 kg

DRUGS (2)
  1. RISPERIDONE [Suspect]
     Active Substance: RISPERIDONE
     Indication: Autism spectrum disorder
     Dosage: TITRATED UP TO A MAINTENANCE LEVEL OF 0.25 MG OF RISPERIDONE, DAILY
     Route: 048
     Dates: start: 2024, end: 2024
  2. PROPRANOLOL [Concomitant]
     Active Substance: PROPRANOLOL HYDROCHLORIDE
     Indication: Autism spectrum disorder
     Dosage: SHE TOOK THE SAME DOSAGE DAILY THROUGH THE ENTIRE PERIOD OF THE STUDY (10 MG 2 X DAILY)
     Dates: start: 2024

REACTIONS (3)
  - Galactorrhoea [Not Recovered/Not Resolved]
  - Movement disorder [Recovered/Resolved]
  - Extrapyramidal disorder [Recovered/Resolved]

NARRATIVE: CASE EVENT DATE: 20240101
